FAERS Safety Report 8383685-7 (Version None)
Quarter: 2012Q2

REPORT INFORMATION
  Report Type: 
  Country: None (occurrence: None)
  Receive Date: 20120524
  Receipt Date: 20120509
  Transmission Date: 20120825
  Serious: Yes (Life-Threatening, Hospitalization)
  Sender: FDA-Public Use
  Company Number: DE-JUTA GMBH-2012-08174

PATIENT
  Age: 38 Year
  Sex: Female

DRUGS (3)
  1. PYRIDOSTIGMINE BROMIDE [Suspect]
     Indication: MYASTHENIA GRAVIS
     Dosage: UNK
     Route: 065
  2. AZATHIOPRINE [Suspect]
     Indication: MYASTHENIA GRAVIS
     Dosage: UNK
     Route: 065
  3. PREDNISONE TAB [Suspect]
     Indication: MYASTHENIA GRAVIS
     Dosage: UNK
     Route: 065

REACTIONS (2)
  - PREMATURE RUPTURE OF MEMBRANES [None]
  - MYASTHENIA GRAVIS CRISIS [None]
